FAERS Safety Report 7810071-8 (Version None)
Quarter: 2011Q4

REPORT INFORMATION
  Report Type: 
  Country: None (occurrence: None)
  Receive Date: 20111012
  Receipt Date: 20111007
  Transmission Date: 20120403
  Serious: Yes (Death)
  Sender: FDA-Public Use
  Company Number: FI-PFIZER INC-2011240672

PATIENT
  Age: 20 Year
  Sex: Male

DRUGS (3)
  1. ZOPICLONE [Suspect]
     Indication: INSOMNIA
     Dosage: 0.5-1 TABLET OVERNIGHT
  2. TRAMADOL HCL [Suspect]
     Dosage: MAXIMUM DOSE OF 350MG DAIL
  3. PREGABALIN [Suspect]
     Indication: PAIN
     Dosage: 150 MG, 2X/DAY
     Dates: start: 20060101

REACTIONS (2)
  - DEATH [None]
  - DRUG LEVEL INCREASED [None]
